FAERS Safety Report 8480815-3 (Version None)
Quarter: 2012Q3

REPORT INFORMATION
  Report Type: 
  Country: None (occurrence: None)
  Receive Date: 20120702
  Receipt Date: 20120622
  Transmission Date: 20120928
  Serious: Yes (Hospitalization, Other)
  Sender: FDA-Public Use
  Company Number: US-BAYER-2012-059839

PATIENT
  Age: 35 Year
  Sex: Female
  Weight: 72.562 kg

DRUGS (5)
  1. DROSPIRENONE AND ETHINYL ESTRADIOL [Suspect]
     Indication: CONTRACEPTION
     Dosage: UNK
     Dates: start: 20111125, end: 20120115
  2. YAZ [Suspect]
     Indication: CONTRACEPTION
  3. DROSPIRENONE AND ETHINYL ESTRADIOL [Suspect]
     Indication: ACNE
     Dosage: UNK
     Dates: start: 20111125, end: 20120115
  4. MULTI-VITAMIN [Concomitant]
     Dosage: ONE PILL ONCE DAILY
  5. YAZ [Suspect]
     Indication: ACNE

REACTIONS (6)
  - LOBAR PNEUMONIA [None]
  - DYSPNOEA [None]
  - PULMONARY EMBOLISM [None]
  - FLANK PAIN [None]
  - BACK PAIN [None]
  - INJURY [None]
